FAERS Safety Report 20443819 (Version 1)
Quarter: 2022Q1

REPORT INFORMATION
  Report Type: Spontaneous
  Country: SG (occurrence: SG)
  Receive Date: 20220208
  Receipt Date: 20220208
  Transmission Date: 20220424
  Serious: Yes (Other)
  Sender: FDA-Public Use
  Company Number: SG-IGSA-BIG0015177

PATIENT
  Age: 11 Year
  Sex: Male

DRUGS (4)
  1. PROFILNINE [Suspect]
     Active Substance: FACTOR IX COMPLEX
     Indication: Rectal haemorrhage
     Dosage: 100 INTERNATIONAL UNIT/KILOGRAM, BID
  2. PROFILNINE [Suspect]
     Active Substance: FACTOR IX COMPLEX
     Indication: Factor IX deficiency
  3. TRANEXAMIC ACID [Concomitant]
     Active Substance: TRANEXAMIC ACID
     Indication: Rectal haemorrhage
     Dosage: 500 MILLIGRAM, TID
  4. TRANEXAMIC ACID [Concomitant]
     Active Substance: TRANEXAMIC ACID
     Indication: Factor IX deficiency

REACTIONS (5)
  - Venous thrombosis limb [Recovered/Resolved]
  - Peripheral swelling [Recovered/Resolved]
  - Tenderness [Recovered/Resolved]
  - Cerebral venous sinus thrombosis [Recovered/Resolved]
  - Generalised tonic-clonic seizure [Recovered/Resolved]
